FAERS Safety Report 10308042 (Version 2)
Quarter: 2014Q3

REPORT INFORMATION
  Report Type: Spontaneous
  Country: US (occurrence: US)
  Receive Date: 20140716
  Receipt Date: 20140721
  Transmission Date: 20150326
  Serious: Yes (Death, Hospitalization)
  Sender: FDA-Public Use
  Company Number: US-SA-2014SA091953

PATIENT
  Age: 28 Month
  Sex: Male
  Weight: 17.17 kg

DRUGS (1)
  1. ARALEN [Suspect]
     Active Substance: CHLOROQUINE PHOSPHATE
     Indication: PRODUCT USED FOR UNKNOWN INDICATION
     Route: 065

REACTIONS (18)
  - Hypothermia [Recovering/Resolving]
  - Loss of consciousness [Fatal]
  - Metabolic acidosis [Unknown]
  - Renal injury [Unknown]
  - Ventricular fibrillation [Unknown]
  - Brain herniation [Fatal]
  - Cardiac arrest [Fatal]
  - Brain injury [Fatal]
  - Apnoea [Fatal]
  - Cerebral haemorrhage [Fatal]
  - Hyperglycaemia [Unknown]
  - Bronchitis [Unknown]
  - Toxicity to various agents [Fatal]
  - Blood pH decreased [Unknown]
  - Lung infiltration [Unknown]
  - Pupil fixed [Fatal]
  - Brain oedema [Fatal]
  - Blood bicarbonate decreased [Unknown]
